FAERS Safety Report 7568489-7 (Version None)
Quarter: 2011Q2

REPORT INFORMATION
  Report Type: 
  Country: None (occurrence: None)
  Receive Date: 20110617
  Receipt Date: 20110526
  Transmission Date: 20111010
  Serious: Yes (Hospitalization)
  Sender: FDA-Public Use
  Company Number: 2011AP000531

PATIENT
  Age: 73 Year
  Sex: Male

DRUGS (4)
  1. LOSARTAN POTASSIUM [Suspect]
     Indication: PRODUCT USED FOR UNKNOWN INDICATION
     Dosage: 100 MG, PO
     Route: 048
     Dates: start: 20110201, end: 20110314
  2. GLUCOBAY [Suspect]
     Indication: DIABETES MELLITUS
     Dosage: 150 MG, TAB. PO
     Route: 048
     Dates: start: 20110222, end: 20110315
  3. SIMVASTATIN [Suspect]
     Indication: HYPERCHOLESTEROLAEMIA
     Dosage: 20 MG, TAB, FILM, PO
     Route: 048
     Dates: start: 20110201, end: 20110314
  4. METFORMIN HCL [Concomitant]

REACTIONS (5)
  - DIARRHOEA [None]
  - CALCULUS URETERIC [None]
  - URETHRAL OBSTRUCTION [None]
  - CALCULUS URETHRAL [None]
  - HYDRONEPHROSIS [None]
